FAERS Safety Report 7470897-X (Version None)
Quarter: 2011Q2

REPORT INFORMATION
  Report Type: 
  Country: None (occurrence: None)
  Receive Date: 20110506
  Receipt Date: 20110506
  Transmission Date: 20111010
  Serious: Yes (Life-Threatening)
  Sender: FDA-Public Use
  Company Number: None

PATIENT
  Sex: Female
  Weight: 90.7194 kg

DRUGS (1)
  1. ENABLEX [Suspect]
     Indication: BLADDER DISORDER
     Dosage: 15MG 2 TIMES A DAY
     Dates: start: 20101207, end: 20110325

REACTIONS (4)
  - CHOKING [None]
  - DYSPNOEA [None]
  - CONSTIPATION [None]
  - THROAT TIGHTNESS [None]
